FAERS Safety Report 24165135 (Version 3)
Quarter: 2024Q3

REPORT INFORMATION
  Report Type: Report from Study
  Country: CA (occurrence: CA)
  Receive Date: 20240802
  Receipt Date: 20240908
  Transmission Date: 20241017
  Serious: Yes (Hospitalization)
  Sender: ABBVIE
  Company Number: CA-ABBVIE-5862621

PATIENT
  Age: 76 Year
  Sex: Male

DRUGS (4)
  1. RINVOQ [Suspect]
     Active Substance: UPADACITINIB
     Indication: Crohn^s disease
     Dosage: LAST ADMIN DATE JUL 2024
     Route: 048
     Dates: start: 20240712
  2. RINVOQ [Suspect]
     Active Substance: UPADACITINIB
     Indication: Crohn^s disease
     Route: 048
  3. RINVOQ [Suspect]
     Active Substance: UPADACITINIB
     Indication: Crohn^s disease
     Route: 048
  4. ATORVASTATIN [Concomitant]
     Active Substance: ATORVASTATIN
     Indication: Product used for unknown indication
     Dates: start: 2024

REACTIONS (10)
  - Dizziness [Recovering/Resolving]
  - Ataxia [Recovering/Resolving]
  - Drug hypersensitivity [Unknown]
  - Dysarthria [Recovering/Resolving]
  - Weight increased [Unknown]
  - Transient ischaemic attack [Unknown]
  - Confusional state [Recovering/Resolving]
  - Montreal cognitive assessment abnormal [Unknown]
  - Nausea [Unknown]
  - Tandem gait test abnormal [Unknown]

NARRATIVE: CASE EVENT DATE: 20240101
